FAERS Safety Report 8536980-2 (Version None)
Quarter: 2012Q3

REPORT INFORMATION
  Report Type: 
  Country: None (occurrence: None)
  Receive Date: 20120725
  Receipt Date: 20120717
  Transmission Date: 20120928
  Serious: Yes (Hospitalization, Other)
  Sender: FDA-Public Use
  Company Number: US-ABBOTT-12P-163-0954063-00

PATIENT
  Sex: Female
  Weight: 94.432 kg

DRUGS (22)
  1. ENBREL [Concomitant]
     Indication: PSORIATIC ARTHROPATHY
     Route: 050
     Dates: start: 20101208, end: 20110301
  2. HUMIRA [Suspect]
     Indication: PSORIATIC ARTHROPATHY
     Route: 050
     Dates: start: 20101018, end: 20101115
  3. PREDNISONE [Concomitant]
     Indication: PSORIATIC ARTHROPATHY
     Route: 048
     Dates: start: 20101201, end: 20101201
  4. PREDNISONE [Concomitant]
     Route: 048
     Dates: start: 20101203, end: 20101205
  5. PREDNISONE [Concomitant]
     Route: 048
     Dates: start: 20101206, end: 20110101
  6. DHA [Concomitant]
     Indication: PRODUCT USED FOR UNKNOWN INDICATION
     Route: 048
     Dates: start: 20101115, end: 20110701
  7. PHENERGAN HCL [Concomitant]
     Indication: NAUSEA
     Route: 048
     Dates: start: 20101208, end: 20101229
  8. CAFFEINE [Concomitant]
     Indication: PRODUCT USED FOR UNKNOWN INDICATION
     Route: 048
     Dates: start: 20101018, end: 20110318
  9. ENBREL [Concomitant]
     Route: 050
     Dates: start: 20110314, end: 20110701
  10. ASCORBIC ACID [Concomitant]
     Indication: IMMUNE SYSTEM DISORDER
     Dates: start: 20101018, end: 20110318
  11. TYLENOL [Concomitant]
     Indication: HEADACHE
     Route: 048
     Dates: start: 20101018, end: 20101221
  12. FERROUS SULFATE TAB [Concomitant]
     Indication: FATIGUE
     Route: 048
     Dates: start: 20110218, end: 20110318
  13. PENICILLIN [Concomitant]
     Indication: STREPTOCOCCUS TEST POSITIVE
     Route: 042
     Dates: start: 20110606, end: 20110608
  14. CALCIUM CARBONATE [Concomitant]
     Route: 048
     Dates: start: 20101222, end: 20110701
  15. PROCARDIA [Concomitant]
     Indication: HYPERTENSION
     Route: 048
     Dates: start: 20110513, end: 20110701
  16. MULTI-VITAMINS [Concomitant]
     Indication: PRODUCT USED FOR UNKNOWN INDICATION
     Route: 048
     Dates: start: 20101115, end: 20110701
  17. CALCIUM CARBONATE [Concomitant]
     Indication: DYSPEPSIA
     Dosage: 3.5 TOTAL
     Route: 048
     Dates: start: 20101018, end: 20101221
  18. CAFFEINE CITRATE [Concomitant]
     Indication: PRODUCT USED FOR UNKNOWN INDICATION
     Route: 048
     Dates: start: 20101018, end: 20101115
  19. VITAMIN D [Concomitant]
     Indication: VITAMIN D DEFICIENCY
     Dosage: 3.5 TIMES PER WEEK
     Route: 048
     Dates: start: 20101018, end: 20110318
  20. PREDNISONE [Concomitant]
     Route: 048
     Dates: start: 20101202, end: 20101202
  21. EXTRA STRENGTH TYLENOL [Concomitant]
     Indication: PYREXIA
     Route: 048
     Dates: start: 20101222, end: 20110604
  22. EXTRA STRENGTH TYLENOL [Concomitant]
     Indication: MIGRAINE

REACTIONS (15)
  - MIGRAINE [None]
  - POLYHYDRAMNIOS [None]
  - HYPERTENSION [None]
  - PREMATURE LABOUR [None]
  - NAUSEA [None]
  - NASOPHARYNGITIS [None]
  - HEADACHE [None]
  - UTERINE CONTRACTIONS DURING PREGNANCY [None]
  - INFLUENZA [None]
  - VITAMIN D DEFICIENCY [None]
  - DYSPEPSIA [None]
  - FATIGUE [None]
  - PYREXIA [None]
  - BETA HAEMOLYTIC STREPTOCOCCAL INFECTION [None]
  - HYPERTHERMIA [None]
